FAERS Safety Report 8828468 (Version 1)
Quarter: 2012Q4

REPORT INFORMATION
  Report Type: 
  Country: US (occurrence: US)
  Receive Date: 20121005
  Receipt Date: 20121005
  Transmission Date: 20130627
  Serious: No
  Sender: FDA-Public Use
  Company Number: US-BIOGENIDEC-2012BI042024

PATIENT
  Age: 36 Year
  Sex: Female

DRUGS (3)
  1. TYSABRI [Suspect]
     Indication: MULTIPLE SCLEROSIS
     Route: 042
     Dates: start: 20120409
  2. DITROPAN [Concomitant]
     Indication: BALANCE DISORDER
  3. DITROPAN [Concomitant]
     Indication: POLLAKIURIA

REACTIONS (1)
  - Asthma [Unknown]
